FAERS Safety Report 9532154 (Version 3)
Quarter: 2014Q1

REPORT INFORMATION
  Report Type: Spontaneous
  Country: GB (occurrence: GB)
  Receive Date: 20130918
  Receipt Date: 20140317
  Transmission Date: 20141002
  Serious: Yes (Death, Other)
  Sender: FDA-Public Use
  Company Number: GB-PFIZER INC-2013266558

PATIENT
  Age: 23 Year
  Sex: Male

DRUGS (1)
  1. IBUPROFEN [Suspect]
     Dosage: 2-4 TABLETS.
     Route: 048

REACTIONS (8)
  - Idiosyncratic drug reaction [Fatal]
  - Intestinal ischaemia [Fatal]
  - Gastrointestinal haemorrhage [Fatal]
  - Myocardial infarction [Fatal]
  - Blood potassium increased [Fatal]
  - Hyperthermia [Fatal]
  - Dehydration [Fatal]
  - Exercise tolerance decreased [Fatal]
